FAERS Safety Report 13769814 (Version 10)
Quarter: 2020Q1

REPORT INFORMATION
  Report Type: Report from Study
  Country: PA (occurrence: PA)
  Receive Date: 20170719
  Receipt Date: 20200204
  Transmission Date: 20200409
  Serious: Yes (Other)
  Sender: FDA-Public Use
  Company Number: PHHY2017PA105416

PATIENT
  Age: 36 Year
  Sex: Male

DRUGS (2)
  1. GILENYA [Suspect]
     Active Substance: FINGOLIMOD HYDROCHLORIDE
     Dosage: UNK
     Route: 065
     Dates: start: 20191008
  2. GILENYA [Suspect]
     Active Substance: FINGOLIMOD HYDROCHLORIDE
     Indication: MULTIPLE SCLEROSIS
     Dosage: 0.5 MG, QD
     Route: 048
     Dates: start: 201703

REACTIONS (11)
  - Macular degeneration [Unknown]
  - Muscle spasms [Unknown]
  - Hypoaesthesia [Unknown]
  - Malaise [Unknown]
  - Strabismus [Unknown]
  - Diplopia [Unknown]
  - Ocular discomfort [Unknown]
  - Multiple sclerosis relapse [Unknown]
  - Astigmatism [Unknown]
  - Balance disorder [Unknown]
  - Metamorphopsia [Unknown]

NARRATIVE: CASE EVENT DATE: 201812
